FAERS Safety Report 5938229-3 (Version None)
Quarter: 2008Q4

REPORT INFORMATION
  Report Type: 
  Country: None (occurrence: None)
  Receive Date: 20081031
  Receipt Date: 20081020
  Transmission Date: 20090506
  Serious: Yes (Other)
  Sender: FDA-Public Use
  Company Number: JP-PFIZER INC-2008089260

PATIENT
  Age: 69 Year
  Sex: Male

DRUGS (1)
  1. SULPERAZON [Suspect]
     Route: 042
     Dates: start: 20081007, end: 20081019

REACTIONS (1)
  - PLATELET COUNT DECREASED [None]
